FAERS Safety Report 17806071 (Version 1)
Quarter: 2020Q2

REPORT INFORMATION
  Report Type: Spontaneous
  Country: FR (occurrence: FR)
  Receive Date: 20200520
  Receipt Date: 20200520
  Transmission Date: 20200714
  Serious: Yes (Hospitalization)
  Sender: FDA-Public Use
  Company Number: FR-ACCORD-182412

PATIENT
  Age: 52 Year
  Sex: Female
  Weight: 106 kg

DRUGS (6)
  1. IVERMECTIN. [Suspect]
     Active Substance: IVERMECTIN
     Indication: INFECTION PARASITIC
     Route: 048
     Dates: start: 20200314, end: 20200314
  2. BISOPROLOL [Suspect]
     Active Substance: BISOPROLOL
     Indication: CONGESTIVE CARDIOMYOPATHY
     Route: 048
  3. XARELTO [Suspect]
     Active Substance: RIVAROXABAN
     Indication: CONGESTIVE CARDIOMYOPATHY
     Dosage: STRENGTH: 20 MG
     Route: 048
     Dates: start: 20200202
  4. FUROSEMIDE. [Suspect]
     Active Substance: FUROSEMIDE
     Indication: CONGESTIVE CARDIOMYOPATHY
     Route: 048
  5. EPLERENONE. [Suspect]
     Active Substance: EPLERENONE
     Indication: CONGESTIVE CARDIOMYOPATHY
     Route: 048
  6. TRIATEC (RAMIPRIL) [Suspect]
     Active Substance: RAMIPRIL
     Indication: CONGESTIVE CARDIOMYOPATHY
     Dosage: STRENGTH: 10 MG, SCORED TABLET
     Route: 048

REACTIONS (2)
  - Hypersensitivity vasculitis [Not Recovered/Not Resolved]
  - Vascular purpura [Not Recovered/Not Resolved]

NARRATIVE: CASE EVENT DATE: 20200320
